FAERS Safety Report 7652392-8 (Version None)
Quarter: 2011Q3

REPORT INFORMATION
  Report Type: 
  Country: None (occurrence: None)
  Receive Date: 20110803
  Receipt Date: 20100317
  Transmission Date: 20111222
  Serious: No
  Sender: FDA-Public Use
  Company Number: US-BAYER-201017781NA

PATIENT
  Sex: Female

DRUGS (1)
  1. MIRENA [Suspect]
     Dosage: 20 MCG/24HR, UNK
     Route: 015
     Dates: start: 20080101

REACTIONS (4)
  - DIZZINESS [None]
  - AMENORRHOEA [None]
  - METRORRHAGIA [None]
  - ABDOMINAL PAIN UPPER [None]
